FAERS Safety Report 6356951-4 (Version None)
Quarter: 2009Q3

REPORT INFORMATION
  Report Type: 
  Country: None (occurrence: None)
  Receive Date: 20090915
  Receipt Date: 20090901
  Transmission Date: 20100115
  Serious: Yes (Other)
  Sender: FDA-Public Use
  Company Number: EG-ROCHE-653826

PATIENT

DRUGS (4)
  1. PEGASYS [Suspect]
     Route: 058
     Dates: start: 20090118
  2. RIBAVIRIN [Suspect]
     Route: 048
     Dates: start: 20090118
  3. PARACETAMOL [Concomitant]
     Route: 048
     Dates: start: 20090308
  4. PREGABALIN [Concomitant]
     Dosage: DRUG NAME REPORTED AS PREGABLINL
     Route: 048
     Dates: start: 20090505

REACTIONS (3)
  - DYSARTHRIA [None]
  - FACE OEDEMA [None]
  - OEDEMA PERIPHERAL [None]
